FAERS Safety Report 11077648 (Version 1)
Quarter: 2015Q2

REPORT INFORMATION
  Report Type: Spontaneous
  Country: BR (occurrence: BR)
  Receive Date: 20150430
  Receipt Date: 20150430
  Transmission Date: 20150821
  Serious: Yes (Hospitalization, Other)
  Sender: FDA-Public Use
  Company Number: BR-AMGEN-BRASP2015007482

PATIENT
  Age: 61 Year
  Sex: Female
  Weight: 114 kg

DRUGS (13)
  1. DIURIX                             /00032601/ [Concomitant]
     Indication: BLOOD PRESSURE
     Dosage: UNK
  2. ENBREL [Suspect]
     Active Substance: ETANERCEPT
     Dosage: UNK
     Route: 065
  3. VICOG [Concomitant]
     Active Substance: VINPOCETINE
     Indication: AMNESIA
     Dosage: UNK
  4. ATENOLOL. [Concomitant]
     Active Substance: ATENOLOL
     Dosage: UNK,NIGHT AND MORNING
  5. ENBREL [Suspect]
     Active Substance: ETANERCEPT
     Dosage: UNK
     Route: 065
  6. CINNARIZINE [Concomitant]
     Active Substance: CINNARIZINE
     Indication: DIZZINESS
     Dosage: UNK
  7. ENBREL [Suspect]
     Active Substance: ETANERCEPT
     Indication: RHEUMATOID ARTHRITIS
     Dosage: 50 MG, EVERY TUESDAY
     Route: 065
     Dates: start: 20121023
  8. LOSARTAN [Concomitant]
     Active Substance: LOSARTAN
     Dosage: UNK,NIGHT AND MORNING
     Dates: start: 20110421
  9. LEVOTHYROXINE [Concomitant]
     Active Substance: LEVOTHYROXINE
     Dosage: UNK
  10. OMEPRAZOLE. [Concomitant]
     Active Substance: OMEPRAZOLE
     Indication: ABDOMINAL DISCOMFORT
     Dosage: UNK
  11. METHOTREXATE [Concomitant]
     Active Substance: METHOTREXATE
     Dosage: EVERY MONDAY 6 TABLETS
     Dates: start: 20121023
  12. SILIMALON [Concomitant]
     Indication: HEPATIC STEATOSIS
     Dosage: 1X/DAY
     Dates: start: 2014
  13. SIMVASTATIN. [Concomitant]
     Active Substance: SIMVASTATIN
     Dosage: UNK
     Dates: start: 20120420

REACTIONS (1)
  - Liver disorder [Not Recovered/Not Resolved]

NARRATIVE: CASE EVENT DATE: 201407
